FAERS Safety Report 4761347-2 (Version None)
Quarter: 2005Q3

REPORT INFORMATION
  Report Type: 
  Country: None (occurrence: None)
  Receive Date: 20050901
  Receipt Date: 20050506
  Transmission Date: 20060218
  Serious: Yes (Hospitalization)
  Sender: FDA-Public Use
  Company Number: 2005-FR-00258

PATIENT
  Age: 70 Year
  Sex: Male

DRUGS (8)
  1. ASPIRIN [Suspect]
     Indication: PAIN
     Dosage: 75 MG OD, ORAL
     Route: 048
     Dates: end: 20050409
  2. AMLODIPINE [Concomitant]
  3. ATENOLOL [Concomitant]
  4. ATORVASTATIN CALCIUM [Concomitant]
  5. BENDROFLUMETHIAZIDE [Concomitant]
  6. NICORANDIL [Concomitant]
  7. LOSARTAN POTASSIUM [Concomitant]
  8. GTN [Concomitant]

REACTIONS (5)
  - ANGINA PECTORIS [None]
  - DUODENITIS [None]
  - FAECES DISCOLOURED [None]
  - GASTRITIS [None]
  - HELICOBACTER INFECTION [None]
